FAERS Safety Report 24158169 (Version 1)
Quarter: 2024Q3

REPORT INFORMATION
  Report Type: Spontaneous
  Country: US (occurrence: None)
  Receive Date: 20240731
  Receipt Date: 20240731
  Transmission Date: 20241016
  Serious: Yes (Hospitalization)
  Sender: Public
  Company Number: None

PATIENT
  Age: 55 Year
  Sex: Male
  Weight: 101 kg

DRUGS (1)
  1. MIRCERA [Suspect]
     Active Substance: METHOXY POLYETHYLENE GLYCOL-EPOETIN BETA
     Dosage: OTHER FREQUENCY : OTHER;?
     Route: 042
     Dates: start: 20240724, end: 20240724

REACTIONS (3)
  - Blood pressure increased [None]
  - Unresponsive to stimuli [None]
  - Dialysis [None]

NARRATIVE: CASE EVENT DATE: 20240724
